FAERS Safety Report 22209196 (Version 1)
Quarter: 2023Q2

REPORT INFORMATION
  Report Type: Spontaneous
  Country: JP (occurrence: JP)
  Receive Date: 20230413
  Receipt Date: 20230413
  Transmission Date: 20230722
  Serious: Yes (Life-Threatening)
  Sender: FDA-Public Use
  Company Number: JP-002147023-NVSJ2023JP006331

PATIENT
  Sex: Male

DRUGS (1)
  1. COSENTYX [Suspect]
     Active Substance: SECUKINUMAB
     Indication: Pustular psoriasis
     Dosage: UNK
     Route: 065

REACTIONS (3)
  - Pulmonary oedema [Unknown]
  - Pustular psoriasis [Unknown]
  - Condition aggravated [Unknown]
